FAERS Safety Report 10504280 (Version 2)
Quarter: 2014Q4

REPORT INFORMATION
  Report Type: Report from Study
  Country: US (occurrence: US)
  Receive Date: 20141008
  Receipt Date: 20141113
  Transmission Date: 20150528
  Serious: Yes (Hospitalization)
  Sender: FDA-Public Use
  Company Number: US-JNJFOC-20141002991

PATIENT
  Age: 20 Year
  Sex: Male
  Weight: 62.1 kg

DRUGS (6)
  1. OMEPRAZOLE. [Concomitant]
     Active Substance: OMEPRAZOLE
     Route: 065
  2. REMICADE [Suspect]
     Active Substance: INFLIXIMAB
     Indication: INFLAMMATORY BOWEL DISEASE
     Route: 042
     Dates: start: 20140924
  3. MULTIVITAMINS [Concomitant]
     Active Substance: VITAMINS
     Route: 065
  4. REMICADE [Suspect]
     Active Substance: INFLIXIMAB
     Indication: INFLAMMATORY BOWEL DISEASE
     Route: 042
     Dates: start: 20100426
  5. 5-ASA [Concomitant]
     Active Substance: MESALAMINE
     Route: 048
  6. ZYRTEC [Concomitant]
     Active Substance: CETIRIZINE HYDROCHLORIDE
     Route: 065

REACTIONS (1)
  - Crohn^s disease [Recovered/Resolved]

NARRATIVE: CASE EVENT DATE: 20140921
